FAERS Safety Report 5281767-X (Version None)
Quarter: 2007Q1

REPORT INFORMATION
  Report Type: 
  Country: None (occurrence: None)
  Receive Date: 20070330
  Receipt Date: 20070322
  Transmission Date: 20070707
  Serious: Yes (Hospitalization)
  Sender: FDA-Public Use
  Company Number: FR-GLAXOSMITHKLINE-B0463679A

PATIENT
  Age: 79 Year
  Sex: Female

DRUGS (3)
  1. DEROXAT [Suspect]
     Dosage: 20MG PER DAY
     Route: 048
     Dates: end: 20070103
  2. ARICEPT [Suspect]
     Dosage: 5MG PER DAY
     Route: 048
     Dates: end: 20070103
  3. NISISCO [Suspect]
     Route: 048
     Dates: end: 20070103

REACTIONS (8)
  - ASTHENIA [None]
  - DIARRHOEA [None]
  - FREQUENT BOWEL MOVEMENTS [None]
  - GENERAL PHYSICAL HEALTH DETERIORATION [None]
  - HYPOKALAEMIA [None]
  - HYPONATRAEMIA [None]
  - MEMORY IMPAIRMENT [None]
  - THIRST [None]
